FAERS Safety Report 6653271-5 (Version None)
Quarter: 2010Q1

REPORT INFORMATION
  Report Type: 
  Country: None (occurrence: None)
  Receive Date: 20100326
  Receipt Date: 20100319
  Transmission Date: 20100710
  Serious: Yes (Hospitalization)
  Sender: FDA-Public Use
  Company Number: IT-BAYER-201019630GPV

PATIENT
  Age: 94 Year
  Sex: Male

DRUGS (1)
  1. ASPIRIN [Suspect]
     Indication: DRUG USE FOR UNKNOWN INDICATION
     Dosage: TOTAL DAILY DOSE: 100 MG
     Route: 048
     Dates: start: 20070215, end: 20100301

REACTIONS (4)
  - HAEMATEMESIS [None]
  - MELAENA [None]
  - OESOPHAGEAL ULCER [None]
  - RENAL FAILURE ACUTE [None]
